FAERS Safety Report 10969206 (Version 1)
Quarter: 2015Q1

REPORT INFORMATION
  Report Type: Spontaneous
  Country: CA (occurrence: CA)
  Receive Date: 20150331
  Receipt Date: 20150331
  Transmission Date: 20150721
  Serious: Yes (Other)
  Sender: FDA-Public Use
  Company Number: PHHY2015CA037177

PATIENT
  Sex: Female

DRUGS (3)
  1. CRESTOR [Suspect]
     Active Substance: ROSUVASTATIN CALCIUM
     Indication: PRODUCT USED FOR UNKNOWN INDICATION
     Dosage: UNK
     Route: 065
  2. TEGRETOL-XR [Suspect]
     Active Substance: CARBAMAZEPINE
     Indication: BIPOLAR DISORDER
  3. TEGRETOL-XR [Suspect]
     Active Substance: CARBAMAZEPINE
     Indication: SEIZURE
     Dosage: UNK
     Route: 065

REACTIONS (9)
  - Loss of consciousness [Unknown]
  - Petit mal epilepsy [Unknown]
  - Feeling abnormal [Unknown]
  - Paraesthesia [Unknown]
  - Nausea [Unknown]
  - Product use issue [Unknown]
  - Drug interaction [Unknown]
  - Drug level decreased [Unknown]
  - Aphasia [Unknown]
